FAERS Safety Report 13606122 (Version 1)
Quarter: 2017Q2

REPORT INFORMATION
  Report Type: Spontaneous
  Country: None (occurrence: US)
  Receive Date: 20170602
  Receipt Date: 20170602
  Transmission Date: 20170830
  Serious: Yes (Death)
  Sender: FDA-Public Use
  Company Number: None

PATIENT
  Age: 53 Year
  Sex: Female
  Weight: 82.1 kg

DRUGS (4)
  1. CARBOPLATIN. [Suspect]
     Active Substance: CARBOPLATIN
     Dates: end: 20170512
  2. DOXORUBICIN HYDROCHLORIDE. [Suspect]
     Active Substance: DOXORUBICIN HYDROCHLORIDE
     Dates: end: 20170421
  3. TAXOL [Suspect]
     Active Substance: PACLITAXEL
     Dates: end: 20170519
  4. CYCLOPHOSPHAMIDE. [Suspect]
     Active Substance: CYCLOPHOSPHAMIDE
     Dates: end: 20170421

REACTIONS (9)
  - Seizure [None]
  - Ventricular fibrillation [None]
  - Fall [None]
  - Nausea [None]
  - Cerebral haemorrhage [None]
  - Sepsis [None]
  - Blood electrolytes abnormal [None]
  - Ear discomfort [None]
  - Platelet count decreased [None]

NARRATIVE: CASE EVENT DATE: 20170525
